FAERS Safety Report 7618255-9 (Version None)
Quarter: 2011Q3

REPORT INFORMATION
  Report Type: 
  Country: None (occurrence: None)
  Receive Date: 20110718
  Receipt Date: 20110705
  Transmission Date: 20111222
  Serious: Yes (Death)
  Sender: FDA-Public Use
  Company Number: HK-GLAXOSMITHKLINE-B0733036A

PATIENT

DRUGS (1)
  1. LAMIVUDINE (EPIVIR HBV) [Suspect]
     Indication: HEPATITIS B
     Dosage: 100MG PER DAY
     Route: 065

REACTIONS (2)
  - HEPATIC FAILURE [None]
  - DRUG INEFFECTIVE [None]
